FAERS Safety Report 5641668-1 (Version None)
Quarter: 2008Q1

REPORT INFORMATION
  Report Type: 
  Country: None (occurrence: None)
  Receive Date: 20080131
  Receipt Date: 20071119
  Transmission Date: 20080703
  Serious: No
  Sender: FDA-Public Use
  Company Number: PHEH2007US13321

PATIENT
  Age: 57 Year
  Sex: Male
  Weight: 91.6 kg

DRUGS (5)
  1. TEKTURNA [Suspect]
     Indication: HYPERTENSION
     Dosage: 300 MG, QD, ORAL
     Route: 048
     Dates: start: 20070907, end: 20071002
  2. ATACAND [Concomitant]
  3. LIPITOR [Concomitant]
  4. COVERA-HS [Concomitant]
  5. LANOXIN [Concomitant]

REACTIONS (4)
  - BLOOD CREATININE ABNORMAL [None]
  - BLOOD UREA ABNORMAL [None]
  - JOINT SWELLING [None]
  - PAIN [None]
